FAERS Safety Report 18491040 (Version 3)
Quarter: 2020Q4

REPORT INFORMATION
  Report Type: Spontaneous
  Country: IT (occurrence: IT)
  Receive Date: 20201111
  Receipt Date: 20201215
  Transmission Date: 20210114
  Serious: Yes (Other)
  Sender: FDA-Public Use
  Company Number: NVSC2020IT297289

PATIENT
  Age: 36 Year
  Sex: Female

DRUGS (1)
  1. ADALIMUMAB [Suspect]
     Active Substance: ADALIMUMAB
     Indication: PSORIASIS
     Dosage: 40 MG, BIW
     Route: 058

REACTIONS (4)
  - Paradoxical drug reaction [Recovering/Resolving]
  - Arthritis [Recovered/Resolved]
  - Immune-mediated arthritis [Recovering/Resolving]
  - Therapy partial responder [Unknown]
